FAERS Safety Report 16669572 (Version 1)
Quarter: 2019Q3

REPORT INFORMATION
  Report Type: Spontaneous
  Country: US (occurrence: US)
  Receive Date: 20190805
  Receipt Date: 20190805
  Transmission Date: 20191004
  Serious: No
  Sender: FDA-Public Use
  Company Number: US-ENDO PHARMACEUTICALS INC-2019-105668

PATIENT
  Sex: Female
  Weight: 72.56 kg

DRUGS (1)
  1. ROBAXIN [Suspect]
     Active Substance: METHOCARBAMOL
     Indication: MUSCLE RELAXANT THERAPY
     Dosage: 1 DF, THREE TIMES A DAY OR FOUR TIMES A DAY
     Route: 065
     Dates: end: 201707

REACTIONS (3)
  - Blister [Unknown]
  - Pruritus [Unknown]
  - Blister rupture [Unknown]
